FAERS Safety Report 7918468-2 (Version None)
Quarter: 2011Q4

REPORT INFORMATION
  Report Type: 
  Country: None (occurrence: None)
  Receive Date: 20111116
  Receipt Date: 20110906
  Transmission Date: 20120403
  Serious: No
  Sender: FDA-Public Use
  Company Number: US-COVIDIEN/TYCO HEALTHCARE/MALLINCKRODT-T201101747

PATIENT
  Sex: Female

DRUGS (1)
  1. FENTANYL-100 [Suspect]
     Dosage: 25 UG/HR, UNK
     Dates: start: 20110701

REACTIONS (3)
  - VULVOVAGINAL PRURITUS [None]
  - VULVOVAGINAL BURNING SENSATION [None]
  - RASH MACULOVESICULAR [None]
